FAERS Safety Report 6831785-2 (Version None)
Quarter: 2010Q3

REPORT INFORMATION
  Report Type: 
  Country: None (occurrence: None)
  Receive Date: 20100712
  Receipt Date: 20100528
  Transmission Date: 20110219
  Serious: Yes (Death, Life-Threatening, Other)
  Sender: FDA-Public Use
  Company Number: US-BAXTER-2008BH010990

PATIENT
  Age: 52 Year
  Sex: Male
  Weight: 73 kg

DRUGS (38)
  1. HEPARIN SODIUM [Suspect]
     Indication: THROMBOSIS PROPHYLAXIS
     Route: 010
     Dates: start: 20050225, end: 20080401
  2. HEPARIN SODIUM [Suspect]
     Route: 042
     Dates: start: 20080129
  3. HEPARIN SODIUM [Suspect]
     Route: 040
     Dates: start: 20041116, end: 20061010
  4. HEPARIN SODIUM [Suspect]
     Route: 042
     Dates: start: 20070915, end: 20080422
  5. HEPARIN SODIUM [Suspect]
     Route: 042
     Dates: start: 20041116, end: 20061010
  6. HEPARIN SODIUM [Suspect]
     Route: 042
     Dates: start: 20070915, end: 20080422
  7. HEPARIN SODIUM [Suspect]
     Route: 040
     Dates: start: 20061003, end: 20061003
  8. HEPARIN SODIUM [Suspect]
     Route: 042
     Dates: start: 20070915, end: 20080422
  9. HEPARIN SODIUM [Suspect]
     Route: 042
     Dates: start: 20061003, end: 20061003
  10. HEPARIN SODIUM [Suspect]
     Route: 042
     Dates: start: 20070915, end: 20080422
  11. HEPARIN SODIUM [Suspect]
     Route: 040
     Dates: start: 20061010, end: 20061010
  12. HEPARIN SODIUM [Suspect]
     Route: 042
     Dates: start: 20070915, end: 20080422
  13. HEPARIN SODIUM [Suspect]
     Route: 042
     Dates: start: 20070915, end: 20080422
  14. HEPARIN SODIUM [Suspect]
     Route: 042
     Dates: start: 20070915, end: 20080422
  15. TRAMADOL [Concomitant]
     Indication: PAIN
     Route: 048
  16. HUMALOG [Concomitant]
     Indication: PRODUCT USED FOR UNKNOWN INDICATION
     Route: 058
  17. PHOSLO [Concomitant]
     Indication: PRODUCT USED FOR UNKNOWN INDICATION
     Route: 048
  18. PRILOSEC [Concomitant]
     Indication: PRODUCT USED FOR UNKNOWN INDICATION
     Route: 048
  19. REGLAN [Concomitant]
     Indication: PRODUCT USED FOR UNKNOWN INDICATION
     Route: 048
  20. FOSRENOL [Concomitant]
     Indication: BLOOD PHOSPHORUS INCREASED
     Route: 048
  21. WARFARIN [Concomitant]
     Indication: ANTICOAGULANT THERAPY
     Route: 048
  22. WARFARIN [Concomitant]
     Indication: PRODUCT USED FOR UNKNOWN INDICATION
     Route: 048
  23. JANUVIA [Concomitant]
     Indication: DIABETES MELLITUS
     Route: 048
  24. GLUCERNA WITH PROTEIN POWDER [Concomitant]
     Indication: MEDICAL DIET
     Route: 048
  25. COREG [Concomitant]
     Indication: HYPERTENSION
     Route: 048
  26. SIMVASTATIN [Concomitant]
     Indication: HYPERCHOLESTEROLAEMIA
     Route: 048
  27. ZETIA [Concomitant]
     Indication: HYPERCHOLESTEROLAEMIA
     Route: 048
  28. AVANDIA [Concomitant]
     Indication: DIABETES MELLITUS
     Route: 048
  29. DULCOLAX [Concomitant]
     Indication: CONSTIPATION
     Route: 054
  30. GUAIFENESIN [Concomitant]
     Indication: PRODUCT USED FOR UNKNOWN INDICATION
     Route: 048
  31. LOPERAMIDE [Concomitant]
     Indication: PRODUCT USED FOR UNKNOWN INDICATION
     Route: 048
  32. CLONIDINE [Concomitant]
     Indication: PRODUCT USED FOR UNKNOWN INDICATION
     Route: 048
  33. DIPHENHYDRAMINE [Concomitant]
     Indication: PRODUCT USED FOR UNKNOWN INDICATION
     Route: 048
  34. HUMULIN R [Concomitant]
     Indication: DIABETES MELLITUS
     Route: 058
  35. PRILOSEC [Concomitant]
     Indication: GASTROOESOPHAGEAL REFLUX DISEASE
     Route: 048
  36. PHOSLO [Concomitant]
     Indication: BLOOD PHOSPHORUS INCREASED
     Route: 048
  37. PROTEIN SUPPLEMENTS [Concomitant]
     Indication: MEDICAL DIET
     Route: 048
  38. EPOGEN [Concomitant]
     Indication: ANAEMIA
     Route: 042

REACTIONS (24)
  - ANAEMIA [None]
  - ARRHYTHMIA [None]
  - ARTERIAL HAEMORRHAGE [None]
  - BLOOD GLUCOSE FLUCTUATION [None]
  - BLOOD GLUCOSE INCREASED [None]
  - BRAIN INJURY [None]
  - BRONCHITIS [None]
  - CARDIAC ARREST [None]
  - CARDIAC FAILURE CONGESTIVE [None]
  - DECREASED APPETITE [None]
  - ENCEPHALITIS VIRAL [None]
  - HAEMODIALYSIS [None]
  - HAEMORRHAGE [None]
  - HYPOTENSION [None]
  - HYPOXIC-ISCHAEMIC ENCEPHALOPATHY [None]
  - LOSS OF CONSCIOUSNESS [None]
  - PUPIL FIXED [None]
  - PYREXIA [None]
  - RENAL FAILURE CHRONIC [None]
  - RESPIRATORY FAILURE [None]
  - SEPSIS [None]
  - STAPHYLOCOCCAL INFECTION [None]
  - UNRESPONSIVE TO STIMULI [None]
  - URINARY TRACT INFECTION [None]
